FAERS Safety Report 4427370-2 (Version None)
Quarter: 2004Q3

REPORT INFORMATION
  Report Type: 
  Country: None (occurrence: None)
  Receive Date: 20040816
  Receipt Date: 20040816
  Transmission Date: 20050211
  Serious: Yes (Other)
  Sender: FDA-Public Use
  Company Number: None

PATIENT
  Sex: Male
  Weight: 90.7194 kg

DRUGS (4)
  1. ZYPREXA [Suspect]
     Dosage: SEE B5 IMAGE
  2. DIAZEPAM [Concomitant]
  3. PERCODAN [Concomitant]
  4. VICODIN [Concomitant]

REACTIONS (2)
  - STRESS SYMPTOMS [None]
  - WEIGHT INCREASED [None]
